FAERS Safety Report 24364207 (Version 1)
Quarter: 2024Q3

REPORT INFORMATION
  Report Type: Spontaneous
  Country: US (occurrence: US)
  Receive Date: 20240925
  Receipt Date: 20240925
  Transmission Date: 20241016
  Serious: Yes (Hospitalization, Other)
  Sender: CIPLA
  Company Number: US-MLMSERVICE-20240910-PI188113-00125-1

PATIENT

DRUGS (4)
  1. DONEPEZIL [Suspect]
     Active Substance: DONEPEZIL\DONEPEZIL HYDROCHLORIDE
     Indication: Cognitive disorder
     Dosage: 5 MILLIGRAM, QD
     Route: 065
     Dates: start: 202304, end: 202305
  2. DONEPEZIL [Suspect]
     Active Substance: DONEPEZIL\DONEPEZIL HYDROCHLORIDE
     Dosage: 10 MILLIGRAM, QD, (INCREASED FROM 5 MG TO 10 MG DAILY)
     Route: 065
     Dates: start: 202305, end: 2023
  3. CLOZAPINE [Suspect]
     Active Substance: CLOZAPINE
     Indication: Cognitive disorder
     Dosage: 125 MILLIGRAM, QD, (125 MG AT NIGHT)
     Route: 065
     Dates: start: 202304, end: 2023
  4. HALOPERIDOL [Concomitant]
     Active Substance: HALOPERIDOL
     Indication: Schizoaffective disorder bipolar type
     Dosage: 7.5 MILLIGRAM, BID, (7.5 MG 2 TIMES A DAY)
     Route: 065
     Dates: start: 202304, end: 2023

REACTIONS (4)
  - Delirium [Recovered/Resolved]
  - Altered state of consciousness [Recovered/Resolved]
  - Cholinergic syndrome [Recovered/Resolved]
  - Fall [Recovered/Resolved]

NARRATIVE: CASE EVENT DATE: 20230501
